FAERS Safety Report 9161898 (Version 6)
Quarter: 2014Q3

REPORT INFORMATION
  Report Type: Spontaneous
  Country: US (occurrence: None)
  Receive Date: 20130220
  Receipt Date: 20140916
  Transmission Date: 20150326
  Serious: Yes (Hospitalization, Other)
  Sender: FDA-Public Use
  Company Number: JPI-P-029726

PATIENT
  Age: 49 Year
  Sex: Female
  Weight: 52.3 kg

DRUGS (15)
  1. XYREM [Suspect]
     Active Substance: SODIUM OXYBATE
     Indication: NARCOLEPSY
     Dosage: 4.5 GM (2.25 GM, 2 IN 1 D), ORAL
     Route: 048
     Dates: start: 201111, end: 2011
  2. AMPHETAMINE, DEXTROAMPHETAMINE MIXED SALTS (AMFETAMINE ASPARTATE, AMFETAMINE SULFATE, DEXAMFETAMINE SACCHARATE, DEXAMFETAMINE SULFATE) [Concomitant]
  3. RIZATRIPTAN BENZOATE (RIZATRIPTAN BENZOATE) [Concomitant]
  4. ESOMEPRAZOLE MAGNESIUM. [Concomitant]
     Active Substance: ESOMEPRAZOLE MAGNESIUM
  5. XYREM [Suspect]
     Active Substance: SODIUM OXYBATE
     Indication: CATAPLEXY
     Dosage: 4.5 GM (2.25 GM, 2 IN 1 D), ORAL
     Route: 048
     Dates: start: 201111, end: 2011
  6. XYREM [Suspect]
     Active Substance: SODIUM OXYBATE
     Indication: SOMNOLENCE
     Dosage: 4.5 GM (2.25 GM, 2 IN 1 D), ORAL
     Route: 048
     Dates: start: 201111, end: 2011
  7. MELOXICAM (MELOXICAM) [Concomitant]
     Active Substance: MELOXICAM
  8. BUPROPION (BUPROPION) [Concomitant]
     Active Substance: BUPROPION
  9. LEVOTHYROXINE (LEVOTHYROXINE) [Concomitant]
     Active Substance: LEVOTHYROXINE
  10. HYDROXYCHLOROQUINE (HYDROXYCHLOROQUINE) [Concomitant]
  11. VITAMIN D (ERGOCALCIFEROL) [Concomitant]
     Active Substance: ERGOCALCIFEROL
  12. OXYCODONE (OXYCODONE) [Concomitant]
     Active Substance: OXYCODONE
  13. OXYMORPHONE HYDROCHLORIDE (OXYMORPHONE HYDROCHLORIDE) [Concomitant]
  14. TOLTERODINE TARTRATE (TOLTERODINE TARTRATE) [Concomitant]
  15. PREGABALIN (PREGABALIN) [Concomitant]
     Active Substance: PREGABALIN

REACTIONS (9)
  - Multiple sclerosis [None]
  - Amnesia [None]
  - Somnolence [None]
  - Blood glucose decreased [None]
  - Cerebrospinal fluid leakage [None]
  - Nerve injury [None]
  - Hypoaesthesia [None]
  - Insomnia [None]
  - Nervous system disorder [None]

NARRATIVE: CASE EVENT DATE: 2012
